FAERS Safety Report 24467051 (Version 1)
Quarter: 2024Q4

REPORT INFORMATION
  Report Type: Report from Study
  Country: US (occurrence: US)
  Receive Date: 20241018
  Receipt Date: 20241018
  Transmission Date: 20250114
  Serious: No
  Sender: ROCHE
  Company Number: US-ROCHE-3556261

PATIENT
  Age: 61 Year
  Sex: Female
  Weight: 175.0 kg

DRUGS (2)
  1. XOLAIR [Suspect]
     Active Substance: OMALIZUMAB
     Indication: Asthma
     Dosage: THERAPY END DATE OF OMALIZUMAB WILL BE 10/JAN/2025
     Route: 058
     Dates: start: 20240110
  2. XOLAIR [Suspect]
     Active Substance: OMALIZUMAB

REACTIONS (2)
  - Off label use [Unknown]
  - No adverse event [Unknown]
